FAERS Safety Report 23976174 (Version 1)
Quarter: 2024Q2

REPORT INFORMATION
  Report Type: Report from Study
  Country: BE (occurrence: BE)
  Receive Date: 20240614
  Receipt Date: 20240614
  Transmission Date: 20240716
  Serious: Yes (Death, Other)
  Sender: FDA-Public Use
  Company Number: BE-PFM-2024-03395

PATIENT
  Age: 52 Year
  Sex: Female

DRUGS (12)
  1. ENCORAFENIB [Suspect]
     Active Substance: ENCORAFENIB
     Indication: Malignant melanoma
     Dosage: 300 MG, QD (1/DAY)
     Dates: start: 2021, end: 202112
  2. ENCORAFENIB [Suspect]
     Active Substance: ENCORAFENIB
     Indication: BRAF V600E mutation positive
  3. BINIMETINIB [Suspect]
     Active Substance: BINIMETINIB
     Indication: Malignant melanoma
     Dosage: 15 MG, BID (2/DAY)
     Dates: start: 202110, end: 202112
  4. BINIMETINIB [Suspect]
     Active Substance: BINIMETINIB
     Indication: BRAF V600E mutation positive
  5. REGORAFENIB [Suspect]
     Active Substance: REGORAFENIB
     Indication: Malignant melanoma
     Dosage: 80 MG, QD (1/DAY)
     Dates: start: 202110, end: 202112
  6. REGORAFENIB [Suspect]
     Active Substance: REGORAFENIB
     Indication: BRAF V600E mutation positive
  7. NIVOLUMAB [Suspect]
     Active Substance: NIVOLUMAB
     Indication: Malignant melanoma
     Dosage: UNK
     Dates: start: 202110
  8. NIVOLUMAB [Suspect]
     Active Substance: NIVOLUMAB
     Indication: BRAF V600E mutation positive
  9. IPILIMUMAB [Suspect]
     Active Substance: IPILIMUMAB
     Indication: Malignant melanoma
     Dosage: UNK
     Dates: start: 202110
  10. IPILIMUMAB [Suspect]
     Active Substance: IPILIMUMAB
     Indication: BRAF V600E mutation positive
  11. DABRAFENIB\TRAMETINIB [Suspect]
     Active Substance: DABRAFENIB\TRAMETINIB
     Indication: Malignant melanoma
     Dosage: UNK
     Dates: start: 202110
  12. DABRAFENIB\TRAMETINIB [Suspect]
     Active Substance: DABRAFENIB\TRAMETINIB
     Indication: BRAF V600E mutation positive

REACTIONS (2)
  - Neoplasm progression [Fatal]
  - Epilepsy [Unknown]

NARRATIVE: CASE EVENT DATE: 20220501
